FAERS Safety Report 7182743-2 (Version None)
Quarter: 2010Q4

REPORT INFORMATION
  Report Type: 
  Country: None (occurrence: None)
  Receive Date: 20101221
  Receipt Date: 20100604
  Transmission Date: 20110411
  Serious: No
  Sender: FDA-Public Use
  Company Number: US-AMGEN-TCS412974

PATIENT

DRUGS (2)
  1. ENBREL [Suspect]
     Indication: PSORIATIC ARTHROPATHY
     Dosage: UNK UNK, UNK
  2. ENBREL [Suspect]
     Indication: PSORIASIS

REACTIONS (4)
  - HYPERSENSITIVITY [None]
  - PAIN IN EXTREMITY [None]
  - RASH [None]
  - RHINORRHOEA [None]
